FAERS Safety Report 20035816 (Version 4)
Quarter: 2021Q4

REPORT INFORMATION
  Report Type: Spontaneous
  Country: CA (occurrence: CA)
  Receive Date: 20211105
  Receipt Date: 20211227
  Transmission Date: 20220303
  Serious: Yes (Hospitalization)
  Sender: FDA-Public Use
  Company Number: CA-CELLTRION INC.-2021CA014870

PATIENT

DRUGS (5)
  1. INFLECTRA [Suspect]
     Active Substance: INFLIXIMAB-DYYB
     Indication: Crohn^s disease
     Dosage: 500 MG INDUCTION DOSES AT WEEK 0 AND 2, THEN 1 MONTH LATER, THEN EVERY 2 MONTHS
     Route: 042
     Dates: start: 20210923, end: 20211029
  2. INFLECTRA [Suspect]
     Active Substance: INFLIXIMAB-DYYB
     Dosage: 500 MG INDUCTION DOSES AT WEEK 0 AND 2, THEN 1 MONTH LATER, THEN EVERY 2 MONTHS
     Route: 042
     Dates: start: 20211006
  3. INFLECTRA [Suspect]
     Active Substance: INFLIXIMAB-DYYB
     Dosage: 500 MG INDUCTION DOSES AT WEEK 0 AND 2, THEN 1 MONTH LATER, THEN EVERY 2 MONTHS
     Route: 042
     Dates: start: 20211029, end: 20211029
  4. IRON [Concomitant]
     Active Substance: IRON
     Dosage: 1 DFDOSAGE NOT AVAILABLE
     Route: 065
  5. CHOLECALCIFEROL [Concomitant]
     Active Substance: CHOLECALCIFEROL
     Dosage: 1 DFDOSAGE NOT AVAILABLE
     Route: 065

REACTIONS (4)
  - Abscess [Not Recovered/Not Resolved]
  - Abdominal pain [Not Recovered/Not Resolved]
  - Heart rate decreased [Not Recovered/Not Resolved]
  - Off label use [Unknown]

NARRATIVE: CASE EVENT DATE: 20210923
